FAERS Safety Report 4345778-0 (Version None)
Quarter: 2004Q2

REPORT INFORMATION
  Report Type: 
  Country: None (occurrence: None)
  Receive Date: 20040421
  Receipt Date: 20040413
  Transmission Date: 20050107
  Serious: Yes (Hospitalization)
  Sender: FDA-Public Use
  Company Number: 2004209126FR

PATIENT
  Age: 81 Year
  Sex: Female

DRUGS (3)
  1. ALDACTONE [Suspect]
     Dosage: ORAL
     Route: 048
     Dates: start: 20040127, end: 20040215
  2. LASIX [Suspect]
     Dosage: ORAL
     Route: 048
     Dates: start: 20031215, end: 20040217
  3. DEROXAT [Suspect]
     Dosage: ORAL
     Route: 048
     Dates: start: 20031215, end: 20040218

REACTIONS (5)
  - CONFUSIONAL STATE [None]
  - DEHYDRATION [None]
  - GENERAL PHYSICAL HEALTH DETERIORATION [None]
  - HYPONATRAEMIA [None]
  - LUNG INFECTION [None]
